FAERS Safety Report 4348083-1 (Version None)
Quarter: 2004Q2

REPORT INFORMATION
  Report Type: 
  Country: None (occurrence: None)
  Receive Date: 20040422
  Receipt Date: 20000229
  Transmission Date: 20050107
  Serious: Yes (Death, Life-Threatening, Other)
  Sender: FDA-Public Use
  Company Number: WAES 00030334

PATIENT
  Age: 12 Day
  Sex: Male

DRUGS (2)
  1. INDOCIN [Suspect]
     Indication: PATENT DUCTUS ARTERIOSUS
     Dosage: 180 MICROGM/DAILY IV
     Route: 042
     Dates: start: 19990717, end: 19990717
  2. FUROSEMIDE [Concomitant]

REACTIONS (10)
  - BLOOD CREATININE INCREASED [None]
  - BLOOD UREA INCREASED [None]
  - BLOOD URINE PRESENT [None]
  - HYPERKALAEMIA [None]
  - INTRAVENTRICULAR HAEMORRHAGE [None]
  - NEONATAL DISORDER [None]
  - PROTEIN URINE PRESENT [None]
  - SEPTIC SHOCK [None]
  - THROMBOCYTOPENIA NEONATAL [None]
  - URINE OUTPUT DECREASED [None]
